FAERS Safety Report 19027137 (Version 1)
Quarter: 2021Q1

REPORT INFORMATION
  Report Type: Spontaneous
  Country: US (occurrence: US)
  Receive Date: 20210318
  Receipt Date: 20210318
  Transmission Date: 20210420
  Serious: No
  Sender: FDA-Public Use
  Company Number: US-MYLANLABS-2021M1016087

PATIENT
  Sex: Male

DRUGS (1)
  1. LANSOPRAZOLE DELAYED?RELEASE ORALLY DISINTEGRATING TABLETS [Suspect]
     Active Substance: LANSOPRAZOLE
     Indication: PRODUCT USED FOR UNKNOWN INDICATION
     Dosage: 30 MILLIGRAM

REACTIONS (2)
  - Reflux gastritis [Unknown]
  - Drug ineffective [Unknown]
